FAERS Safety Report 8202853-8 (Version None)
Quarter: 2012Q1

REPORT INFORMATION
  Report Type: 
  Country: None (occurrence: None)
  Receive Date: 20120312
  Receipt Date: 20120312
  Transmission Date: 20120608
  Serious: No
  Sender: FDA-Public Use
  Company Number: None

PATIENT
  Age: 50 Year
  Sex: Male
  Weight: 73.481 kg

DRUGS (2)
  1. EFFIENT [Suspect]
     Indication: THROMBOSIS PROPHYLAXIS
     Dosage: 10 MG.
     Route: 048
     Dates: start: 20110509, end: 20120309
  2. EFFIENT [Suspect]
     Indication: CORONARY ARTERY THROMBOSIS
     Dosage: 10 MG.
     Route: 048
     Dates: start: 20110509, end: 20120309

REACTIONS (8)
  - FLUSHING [None]
  - HEADACHE [None]
  - HOT FLUSH [None]
  - DYSPNOEA [None]
  - FATIGUE [None]
  - DISCOMFORT [None]
  - MUSCULAR WEAKNESS [None]
  - ANXIETY [None]
